FAERS Safety Report 5232387-4 (Version None)
Quarter: 2007Q1

REPORT INFORMATION
  Report Type: 
  Country: None (occurrence: None)
  Receive Date: 20070205
  Receipt Date: 20070125
  Transmission Date: 20070707
  Serious: Yes (Other)
  Sender: FDA-Public Use
  Company Number: GXKR2007GB01202

PATIENT
  Age: 79 Year
  Sex: Male
  Weight: 76.2 kg

DRUGS (7)
  1. MIRTAZAPINE [Suspect]
     Indication: DEPRESSION
     Dosage: 30 MG, QD, ORAL
     Route: 048
     Dates: start: 20061121, end: 20070103
  2. ATORVASTATIN (ATORVASTATIN) UNKNOWN [Concomitant]
  3. FLECAINIDE (FLECAINIDE) UNKNOWN [Concomitant]
  4. OMEPRAZOLE [Concomitant]
  5. SOTALOL (SOTALOL) UNKNOWN [Concomitant]
  6. VERAPAMIL (VERAPAMIL) UNKNOWN [Concomitant]
  7. WARFARIN SODIUM [Concomitant]

REACTIONS (3)
  - GENERALISED ERYTHEMA [None]
  - OEDEMA [None]
  - SKIN EXFOLIATION [None]
